FAERS Safety Report 7042255-3 (Version None)
Quarter: 2010Q4

REPORT INFORMATION
  Report Type: 
  Country: None (occurrence: None)
  Receive Date: 20101008
  Receipt Date: 20100924
  Transmission Date: 20110411
  Serious: Yes (Other)
  Sender: FDA-Public Use
  Company Number: 705143

PATIENT
  Age: 61 Year
  Sex: Male
  Weight: 100 kg

DRUGS (5)
  1. OXALIPLATIN [Suspect]
     Indication: COLON CANCER
     Dates: start: 20100915, end: 20100915
  2. OXALIPLATIN [Suspect]
     Indication: METASTASES TO LIVER
     Dates: start: 20100915, end: 20100915
  3. (CETUXIMAB) [Concomitant]
  4. ZOFRAN [Concomitant]
  5. XELODA [Concomitant]

REACTIONS (3)
  - APPARENT DEATH [None]
  - DRUG HYPERSENSITIVITY [None]
  - HYPERTENSION [None]
